FAERS Safety Report 10287299 (Version 2)
Quarter: 2014Q4

REPORT INFORMATION
  Report Type: Report from Study
  Country: CA (occurrence: CA)
  Receive Date: 20140709
  Receipt Date: 20141226
  Transmission Date: 20150528
  Serious: Yes (Hospitalization, Other)
  Sender: FDA-Public Use
  Company Number: CA-BRISTOL-MYERS SQUIBB COMPANY-21155841

PATIENT
  Age: 56 Year
  Sex: Female
  Weight: 104 kg

DRUGS (6)
  1. METHOTREXATE [Concomitant]
     Active Substance: METHOTREXATE
  2. LYRICA [Concomitant]
     Active Substance: PREGABALIN
  3. ABATACEPT [Suspect]
     Active Substance: ABATACEPT
     Indication: RHEUMATOID ARTHRITIS
     Dosage: 750 MG, QWK
     Route: 042
     Dates: start: 20140214
  4. ARAVA [Concomitant]
     Active Substance: LEFLUNOMIDE
  5. MELOXICAM. [Concomitant]
     Active Substance: MELOXICAM
  6. ABATACEPT [Suspect]
     Active Substance: ABATACEPT
     Indication: RHEUMATOID ARTHRITIS
     Dosage: 125 MG, QWK
     Route: 058
     Dates: start: 20140214

REACTIONS (3)
  - Interstitial lung disease [Unknown]
  - Ulcer haemorrhage [Unknown]
  - Laryngitis [Unknown]

NARRATIVE: CASE EVENT DATE: 20140301
